FAERS Safety Report 11787820 (Version 1)
Quarter: 2015Q4

REPORT INFORMATION
  Report Type: Spontaneous
  Country: US (occurrence: None)
  Receive Date: 20151130
  Receipt Date: 20151130
  Transmission Date: 20160305
  Serious: No
  Sender: FDA-Public Use
  Company Number: US-MDT-ADR-2015-02254

PATIENT
  Age: 50 Year
  Sex: Female

DRUGS (1)
  1. BACLOFEN INTRATHECAL 4000 MCG/ML [Suspect]
     Active Substance: BACLOFEN
     Indication: MUSCLE SPASTICITY
     Dosage: 904.5 MCG/DAY

REACTIONS (2)
  - Unresponsive to stimuli [None]
  - Overdose [None]
